FAERS Safety Report 8150284-1 (Version None)
Quarter: 2012Q1

REPORT INFORMATION
  Report Type: 
  Country: None (occurrence: None)
  Receive Date: 20120220
  Receipt Date: 20120214
  Transmission Date: 20120608
  Serious: No
  Sender: FDA-Public Use
  Company Number: US-PFIZER INC-2012022789

PATIENT
  Sex: Female

DRUGS (7)
  1. LIPITOR [Concomitant]
  2. FUROSEMIDE [Concomitant]
  3. LOPERAMIDE [Concomitant]
  4. CALCIUM [Concomitant]
  5. ACETYLSALICYLIC ACID [Concomitant]
  6. POTASSIUM CHLORIDE [Concomitant]
  7. XALKORI [Suspect]
     Indication: LUNG NEOPLASM MALIGNANT
     Dosage: 250 MG, 2X/DAY
     Dates: start: 20120116

REACTIONS (6)
  - PHOTOPSIA [None]
  - DYSURIA [None]
  - VOMITING [None]
  - MICTURITION DISORDER [None]
  - NAUSEA [None]
  - DIZZINESS [None]
